FAERS Safety Report 4616539-X (Version None)
Quarter: 2005Q1

REPORT INFORMATION
  Report Type: 
  Country: None (occurrence: None)
  Receive Date: 20050318
  Receipt Date: 20050302
  Transmission Date: 20050727
  Serious: Yes (Death)
  Sender: FDA-Public Use
  Company Number: L04-USA-07403-64

PATIENT
  Age: 17 Year
  Sex: Female

DRUGS (3)
  1. TESSALON [Suspect]
  2. GUAIFENESIN W/DEXTROMETHORPHAN [Suspect]
  3. CYCLOBENZAPRINE HCL [Suspect]

REACTIONS (24)
  - ALANINE AMINOTRANSFERASE INCREASED [None]
  - ANOXIA [None]
  - ANURIA [None]
  - ASPARTATE AMINOTRANSFERASE INCREASED [None]
  - BLOOD PH DECREASED [None]
  - BLOOD SODIUM INCREASED [None]
  - BRAIN DEATH [None]
  - BRAIN OEDEMA [None]
  - COMA [None]
  - COMPLETED SUICIDE [None]
  - CONVULSION [None]
  - ELECTROCARDIOGRAM QRS COMPLEX PROLONGED [None]
  - HEART RATE DECREASED [None]
  - HEPATIC CONGESTION [None]
  - HEPATIC HAEMORRHAGE [None]
  - HYPOTENSION [None]
  - INJURY [None]
  - INTENTIONAL MISUSE [None]
  - LOSS OF CONSCIOUSNESS [None]
  - PCO2 DECREASED [None]
  - PO2 INCREASED [None]
  - PULMONARY OEDEMA [None]
  - THERAPY NON-RESPONDER [None]
  - VOMITING [None]
